FAERS Safety Report 5908305-X (Version None)
Quarter: 2008Q4

REPORT INFORMATION
  Report Type: 
  Country: None (occurrence: None)
  Receive Date: 20081002
  Receipt Date: 20081002
  Transmission Date: 20090506
  Serious: Yes (Other)
  Sender: FDA-Public Use
  Company Number: None

PATIENT
  Sex: Male
  Weight: 112.0385 kg

DRUGS (1)
  1. AVELOX [Suspect]
     Dosage: 400 1 QD
     Dates: start: 20080802

REACTIONS (3)
  - CHEST PAIN [None]
  - MUSCLE INJURY [None]
  - SWELLING [None]
